FAERS Safety Report 23955371 (Version 2)
Quarter: 2024Q2

REPORT INFORMATION
  Report Type: Spontaneous
  Country: US (occurrence: US)
  Receive Date: 20240610
  Receipt Date: 20240618
  Transmission Date: 20240716
  Serious: Yes (Disabling, Other)
  Sender: FDA-Public Use
  Company Number: US-REGENERON PHARMACEUTICALS, INC.-2024-082028

PATIENT

DRUGS (1)
  1. EYLEA [Suspect]
     Active Substance: AFLIBERCEPT
     Indication: Product used for unknown indication
     Dosage: UNK; FORMULATION: GERRESHEIMER (PFS); STRENGTH: UNKNOWN; RIGHT EYE
     Route: 031

REACTIONS (2)
  - Blindness unilateral [Unknown]
  - Eye infection staphylococcal [Recovered/Resolved]

NARRATIVE: CASE EVENT DATE: 20240101
